FAERS Safety Report 8340433-4 (Version None)
Quarter: 2012Q2

REPORT INFORMATION
  Report Type: 
  Country: None (occurrence: None)
  Receive Date: 20120507
  Receipt Date: 20120507
  Transmission Date: 20120825
  Serious: Yes (Life-Threatening, Hospitalization)
  Sender: FDA-Public Use
  Company Number: None

PATIENT
  Age: 76 Year
  Sex: Male
  Weight: 127 kg

DRUGS (1)
  1. WARFARIN SODIUM [Suspect]
     Indication: MYOCARDIAL INFARCTION
     Dosage: |STRENGTH: 2MG|

REACTIONS (6)
  - DISORIENTATION [None]
  - BLINDNESS [None]
  - CEREBROVASCULAR ACCIDENT [None]
  - CONFUSIONAL STATE [None]
  - CEREBRAL HAEMORRHAGE [None]
  - APHAGIA [None]
